FAERS Safety Report 5773156-6 (Version None)
Quarter: 2008Q2

REPORT INFORMATION
  Report Type: 
  Country: None (occurrence: None)
  Receive Date: 20080616
  Receipt Date: 20080319
  Transmission Date: 20081010
  Serious: No
  Sender: FDA-Public Use
  Company Number: US-BAYER-200811318BCC

PATIENT
  Age: 63 Year
  Sex: Female
  Weight: 88 kg

DRUGS (3)
  1. ALEVE (CAPLET) [Suspect]
     Indication: MYALGIA
     Dosage: TOTAL DAILY DOSE: 220 MG  UNIT DOSE: 220 MG
     Route: 048
     Dates: start: 20080318, end: 20080318
  2. METOPROLOL [Concomitant]
  3. LEVOTHYROXINE SODIUM [Concomitant]

REACTIONS (1)
  - ABDOMINAL PAIN [None]
